FAERS Safety Report 8239422-X (Version None)
Quarter: 2012Q1

REPORT INFORMATION
  Report Type: 
  Country: None (occurrence: None)
  Receive Date: 20120328
  Receipt Date: 20120316
  Transmission Date: 20120608
  Serious: Yes (Hospitalization, Other)
  Sender: FDA-Public Use
  Company Number: GB-JNJFOC-20120109793

PATIENT
  Sex: Female

DRUGS (6)
  1. REMICADE [Suspect]
     Indication: CROHN'S DISEASE
     Route: 042
     Dates: start: 20120313
  2. REMICADE [Suspect]
     Route: 042
     Dates: start: 20110920
  3. REMICADE [Suspect]
     Route: 042
     Dates: start: 20100505
  4. METHOTREXATE [Concomitant]
     Dosage: DOSE ON 24-DEC (YEAR UNSPECIFIED).
     Route: 065
  5. METHOTREXATE [Concomitant]
     Dosage: INITIATED ON 24-DEC (YEAR UNSPECIFIED)
     Route: 065
     Dates: start: 20081201
  6. REMICADE [Suspect]
     Route: 042
     Dates: start: 20111124

REACTIONS (5)
  - CROHN'S DISEASE [None]
  - BACTERAEMIA [None]
  - AMENORRHOEA [None]
  - IRON DEFICIENCY ANAEMIA [None]
  - CEREBRAL INFARCTION [None]
